FAERS Safety Report 9850345 (Version 1)
Quarter: 2013Q4

REPORT INFORMATION
  Report Type: Spontaneous
  Country: US (occurrence: None)
  Receive Date: 20131226
  Receipt Date: 20131226
  Transmission Date: 20140711
  Serious: Yes (Other)
  Sender: FDA-Public Use
  Company Number: PHEH2012US016063

PATIENT
  Age: 67 Year
  Sex: Female

DRUGS (7)
  1. DIOVAN [Suspect]
     Indication: HYPERTENSION
     Route: 048
  2. HYDROCHLOROTHIAZIDE [Suspect]
  3. PAROXETINE (PAROXETINE) [Concomitant]
  4. SYNTHROID (LEVOTHYROXINE SODIUM) [Concomitant]
  5. FORTAMET (METFORMIN HYDROCHLORIDE) [Concomitant]
  6. AMBIEN (ZOLPIDEM TARTRATE) [Concomitant]
  7. XANAX (ALPRAZOLAM) [Concomitant]

REACTIONS (1)
  - Hypertension [None]
